FAERS Safety Report 6898406-4 (Version None)
Quarter: 2010Q3

REPORT INFORMATION
  Report Type: 
  Country: None (occurrence: None)
  Receive Date: 20100802
  Receipt Date: 20071015
  Transmission Date: 20110219
  Serious: No
  Sender: FDA-Public Use
  Company Number: US-PFIZER INC-2007048994

PATIENT
  Sex: Male

DRUGS (2)
  1. LYRICA [Suspect]
     Indication: NEURALGIA
  2. NEURONTIN [Concomitant]

REACTIONS (3)
  - ABDOMINAL PAIN UPPER [None]
  - FEELING ABNORMAL [None]
  - FEELING DRUNK [None]
